FAERS Safety Report 12874653 (Version 1)
Quarter: 2016Q4

REPORT INFORMATION
  Report Type: Spontaneous
  Country: US (occurrence: US)
  Receive Date: 20161021
  Receipt Date: 20161021
  Transmission Date: 20170207
  Serious: Yes (Death)
  Sender: FDA-Public Use
  Company Number: US-CELGENEUS-USA-2016103566

PATIENT
  Age: 51 Year

DRUGS (11)
  1. SORAFENIB [Concomitant]
     Active Substance: SORAFENIB
     Indication: BREAST CANCER
     Dosage: 200-800MG
     Route: 065
  2. CYCLOPHOSPHAMIDE. [Suspect]
     Active Substance: CYCLOPHOSPHAMIDE
     Indication: BREAST CANCER
     Route: 065
     Dates: start: 200812, end: 200903
  3. DOCETAXEL. [Suspect]
     Active Substance: DOCETAXEL
     Indication: BREAST CANCER
     Route: 065
     Dates: start: 200812, end: 200903
  4. CARBOPLATIN. [Suspect]
     Active Substance: CARBOPLATIN
     Indication: BREAST CANCER
     Route: 065
     Dates: start: 200812, end: 200903
  5. CETUXIMAB [Concomitant]
     Active Substance: CETUXIMAB
     Indication: BREAST CANCER
     Dosage: 250MG/KG
     Route: 065
  6. DENOSUMAB [Concomitant]
     Active Substance: DENOSUMAB
     Indication: BREAST CANCER
     Route: 065
  7. DOXORUBICIN [Suspect]
     Active Substance: DOXORUBICIN
     Indication: BREAST CANCER
     Route: 065
  8. ABRAXANE [Suspect]
     Active Substance: PACLITAXEL
     Indication: BREAST CANCER
     Dosage: 50-75MG/M2
     Route: 041
  9. GEMCITABINE [Concomitant]
     Active Substance: GEMCITABINE\GEMCITABINE HYDROCHLORIDE
     Indication: BREAST CANCER
     Route: 065
     Dates: start: 200812, end: 200903
  10. VORINOSTAT [Concomitant]
     Active Substance: VORINOSTAT
     Indication: BREAST CANCER
     Dosage: 200-600MG
     Route: 065
  11. EVEROLIMUS [Concomitant]
     Active Substance: EVEROLIMUS
     Indication: BREAST CANCER
     Route: 065

REACTIONS (10)
  - Diarrhoea [Unknown]
  - Death [Fatal]
  - Therapy non-responder [Unknown]
  - Nausea [Unknown]
  - Neutropenia [Unknown]
  - Disease progression [Unknown]
  - Asthenia [Unknown]
  - Thrombocytopenia [Unknown]
  - Anaemia [Unknown]
  - Vomiting [Unknown]
